FAERS Safety Report 23939662 (Version 2)
Quarter: 2024Q2

REPORT INFORMATION
  Report Type: Report from Study
  Country: CA (occurrence: CA)
  Receive Date: 20240605
  Receipt Date: 20240606
  Transmission Date: 20240715
  Serious: Yes (Other)
  Sender: FDA-Public Use
  Company Number: CA-JNJFOC-20240485438

PATIENT
  Age: 78 Year
  Sex: Male
  Weight: 107 kg

DRUGS (2)
  1. REMICADE [Suspect]
     Active Substance: INFLIXIMAB
     Indication: Colitis ulcerative
     Route: 041
     Dates: start: 20220222, end: 20240527
  2. UCERIS [Concomitant]
     Active Substance: BUDESONIDE

REACTIONS (4)
  - Macular degeneration [Unknown]
  - Colitis ulcerative [Not Recovered/Not Resolved]
  - Influenza [Not Recovered/Not Resolved]
  - Rash macular [Not Recovered/Not Resolved]
